FAERS Safety Report 9349321 (Version 2)
Quarter: 2013Q3

REPORT INFORMATION
  Report Type: Report from Study
  Country: GB (occurrence: GB)
  Receive Date: 20130614
  Receipt Date: 20130816
  Transmission Date: 20140515
  Serious: Yes (Other)
  Sender: FDA-Public Use
  Company Number: GB-PFIZER INC-2013172089

PATIENT
  Age: 62 Year
  Sex: Female

DRUGS (2)
  1. CELECOXIB [Suspect]
     Indication: RHEUMATOID ARTHRITIS
     Dosage: 100 MG, ONCE EVERY 2 DAYS
     Route: 048
  2. LEFLUNOMIDE [Concomitant]
     Indication: RHEUMATOID ARTHRITIS
     Dosage: 10 MG, 1X/DAY
     Dates: start: 20110425

REACTIONS (1)
  - Loss of consciousness [Not Recovered/Not Resolved]
